FAERS Safety Report 19889760 (Version 1)
Quarter: 2021Q3

REPORT INFORMATION
  Report Type: Spontaneous
  Country: DE (occurrence: DE)
  Receive Date: 20210927
  Receipt Date: 20210927
  Transmission Date: 20211014
  Serious: Yes (Congenital Anomaly, Other)
  Sender: FDA-Public Use
  Company Number: DE-MYLANLABS-2021M1065571

PATIENT
  Age: 1 Day
  Sex: Male
  Weight: 3.82 kg

DRUGS (2)
  1. FOLISURE [Concomitant]
     Indication: PROPHYLAXIS OF NEURAL TUBE DEFECT
     Dosage: 5 MILLIGRAM, QD
     Route: 064
     Dates: start: 20200121, end: 20201104
  2. LAMOTRIGINE. [Suspect]
     Active Substance: LAMOTRIGINE
     Indication: EPILEPSY
     Dosage: 200 [MG/D (100?0?100) ] 2 SEPARATED DOSES
     Route: 064
     Dates: start: 20200121, end: 20201104

REACTIONS (3)
  - Renal aplasia [Unknown]
  - Foetal exposure during pregnancy [Recovered/Resolved]
  - Neonatal tachypnoea [Recovered/Resolved]

NARRATIVE: CASE EVENT DATE: 20201104
